FAERS Safety Report 6686667-6 (Version None)
Quarter: 2010Q2

REPORT INFORMATION
  Report Type: 
  Country: None (occurrence: None)
  Receive Date: 20100416
  Receipt Date: 20100416
  Transmission Date: 20101027
  Serious: Yes (Other)
  Sender: FDA-Public Use
  Company Number: None

PATIENT
  Sex: Male
  Weight: 67.4952 kg

DRUGS (2)
  1. LANSOPRAZOLE [Suspect]
     Indication: ANXIETY
     Dosage: 30 MG @ HS
  2. LANSOPRAZOLE [Suspect]
     Indication: GASTROOESOPHAGEAL REFLUX DISEASE
     Dosage: 30 MG @ HS

REACTIONS (1)
  - DRUG INEFFECTIVE [None]
